FAERS Safety Report 24294209 (Version 1)
Quarter: 2024Q3

REPORT INFORMATION
  Report Type: Spontaneous
  Country: US (occurrence: US)
  Receive Date: 20240906
  Receipt Date: 20240906
  Transmission Date: 20241017
  Serious: No
  Sender: DOMPE FARMACEUTICI
  Company Number: US-FARMAPROD-202308-202405-1985

PATIENT
  Sex: Female

DRUGS (11)
  1. OXERVATE [Suspect]
     Active Substance: CENEGERMIN-BKBJ
     Indication: Neurotrophic keratopathy
     Route: 047
     Dates: start: 20240513
  2. OXERVATE [Suspect]
     Active Substance: CENEGERMIN-BKBJ
  3. LEVOMEFOLIC ACID [Concomitant]
     Active Substance: LEVOMEFOLIC ACID
  4. HYDROCHLOROTHIAZIDE [Concomitant]
     Active Substance: HYDROCHLOROTHIAZIDE
  5. CEQUA [Concomitant]
     Active Substance: CYCLOSPORINE
  6. ADDERALL XR [Concomitant]
     Active Substance: AMPHETAMINE ASPARTATE\AMPHETAMINE SULFATE\DEXTROAMPHETAMINE SACCHARATE\DEXTROAMPHETAMINE SULFATE
     Dosage: 24H
  7. ADDERALL XR [Concomitant]
     Active Substance: AMPHETAMINE ASPARTATE\AMPHETAMINE SULFATE\DEXTROAMPHETAMINE SACCHARATE\DEXTROAMPHETAMINE SULFATE
     Dosage: 24H
  8. ATIVAN [Concomitant]
     Active Substance: LORAZEPAM
  9. FISH OIL [Concomitant]
     Active Substance: FISH OIL
  10. VITAMINS [Concomitant]
     Active Substance: VITAMINS
  11. ATENOLOL [Concomitant]
     Active Substance: ATENOLOL

REACTIONS (3)
  - Eye pain [Recovering/Resolving]
  - Inappropriate schedule of product administration [Unknown]
  - Swelling of eyelid [Recovering/Resolving]
